FAERS Safety Report 12643926 (Version 1)
Quarter: 2016Q3

REPORT INFORMATION
  Report Type: Spontaneous
  Country: US (occurrence: US)
  Receive Date: 20160811
  Receipt Date: 20160811
  Transmission Date: 20161109
  Serious: No
  Sender: FDA-Public Use
  Company Number: US-BAYER-2016-151840

PATIENT
  Age: 70 Year
  Sex: Female
  Weight: 62.59 kg

DRUGS (1)
  1. MIRALAX [Suspect]
     Active Substance: POLYETHYLENE GLYCOL 3350
     Indication: COLONOSCOPY
     Dosage: UNK
     Route: 048
     Dates: end: 20160803

REACTIONS (1)
  - Off label use [None]

NARRATIVE: CASE EVENT DATE: 20160803
